FAERS Safety Report 11876032 (Version 10)
Quarter: 2016Q3

REPORT INFORMATION
  Report Type: Report from Study
  Country: JP (occurrence: JP)
  Receive Date: 20151229
  Receipt Date: 20160728
  Transmission Date: 20161109
  Serious: Yes (Death, Hospitalization, Other)
  Sender: FDA-Public Use
  Company Number: JP-PFIZER INC-2015471785

PATIENT
  Age: 68 Year
  Sex: Male
  Weight: 52 kg

DRUGS (12)
  1. EDIROL [Concomitant]
     Active Substance: ELDECALCITOL
     Route: 048
  2. XELJANZ [Suspect]
     Active Substance: TOFACITINIB CITRATE
     Indication: RHEUMATOID ARTHRITIS
     Dosage: 5 MG, 2X/DAY
     Route: 048
     Dates: start: 20150630, end: 20151119
  3. LYRICA [Concomitant]
     Active Substance: PREGABALIN
     Route: 048
  4. METHOTREXATE SODIUM. [Suspect]
     Active Substance: METHOTREXATE SODIUM
     Indication: RHEUMATOID ARTHRITIS
     Dosage: UNK
     Dates: start: 2003, end: 20050517
  5. TAMSULOSIN [Concomitant]
     Active Substance: TAMSULOSIN
     Route: 048
  6. MASHININGAN [Concomitant]
     Active Substance: HERBALS
     Route: 048
  7. KENEI G [Concomitant]
     Active Substance: GLYCERIN
     Route: 061
  8. LOXOPROFEN SODIUM [Concomitant]
     Active Substance: LOXOPROFEN SODIUM
     Dosage: UNK
     Route: 048
     Dates: start: 20150928
  9. MOHRUS [Concomitant]
     Active Substance: KETOPROFEN
     Route: 062
  10. PROGRAF [Suspect]
     Active Substance: TACROLIMUS\TACROLIMUS ANHYDROUS
     Indication: RHEUMATOID ARTHRITIS
     Dosage: UNK
     Route: 048
     Dates: start: 20080221, end: 20150629
  11. PROTECADIN [Concomitant]
     Active Substance: LAFUTIDINE
     Route: 048
  12. LOXONIN [Concomitant]
     Active Substance: LOXOPROFEN SODIUM
     Route: 062

REACTIONS (4)
  - Diffuse large B-cell lymphoma [Fatal]
  - Hyperuricaemia [Unknown]
  - Mouth ulceration [Unknown]
  - Insomnia [Unknown]

NARRATIVE: CASE EVENT DATE: 20151119
